FAERS Safety Report 12499187 (Version 1)
Quarter: 2016Q2

REPORT INFORMATION
  Report Type: Spontaneous
  Country: US (occurrence: None)
  Receive Date: 20160624
  Receipt Date: 20160624
  Transmission Date: 20160815
  Serious: Yes (Other)
  Sender: FDA-Public Use
  Company Number: None

PATIENT
  Age: 50 Year
  Sex: Female
  Weight: 78.02 kg

DRUGS (2)
  1. BUPROPION 150MG BID [Suspect]
     Active Substance: BUPROPION
     Indication: DEPRESSION
     Route: 048
     Dates: start: 20100401, end: 20100415
  2. BUPROPION 150MG BID [Suspect]
     Active Substance: BUPROPION
     Indication: ANXIETY
     Route: 048
     Dates: start: 20100401, end: 20100415

REACTIONS (5)
  - Product substitution issue [None]
  - Anxiety [None]
  - Abnormal behaviour [None]
  - Condition aggravated [None]
  - Anger [None]

NARRATIVE: CASE EVENT DATE: 201004
